FAERS Safety Report 7912799-8 (Version None)
Quarter: 2011Q4

REPORT INFORMATION
  Report Type: 
  Country: None (occurrence: None)
  Receive Date: 20111114
  Receipt Date: 20110307
  Transmission Date: 20120403
  Serious: Yes (Disabling)
  Sender: FDA-Public Use
  Company Number: US-GLAXOSMITHKLINE-A0917666A

PATIENT
  Age: 69 Year
  Sex: Male

DRUGS (1)
  1. ROSIGLITAZONE MALEATE [Suspect]
     Indication: DIABETES MELLITUS
     Route: 048
     Dates: start: 20031022, end: 20070910

REACTIONS (4)
  - SPINAL DISORDER [None]
  - PHYSICAL DISABILITY [None]
  - SURGERY [None]
  - CARDIOVASCULAR DISORDER [None]
